FAERS Safety Report 10609112 (Version 1)
Quarter: 2014Q4

REPORT INFORMATION
  Report Type: Spontaneous
  Country: CA (occurrence: CA)
  Receive Date: 20141126
  Receipt Date: 20141126
  Transmission Date: 20150529
  Serious: Yes (Disabling)
  Sender: FDA-Public Use
  Company Number: CA-ROCHE-1495972

PATIENT
  Age: 52 Year
  Sex: Male
  Weight: 86.26 kg

DRUGS (12)
  1. PROTOPIC [Concomitant]
     Active Substance: TACROLIMUS
     Route: 061
  2. BENADRYL [Concomitant]
     Active Substance: DIPHENHYDRAMINE HYDROCHLORIDE
  3. CELLCEPT [Suspect]
     Active Substance: MYCOPHENOLATE MOFETIL\MYCOPHENOLATE MOFETIL HYDROCHLORIDE
     Indication: PRODUCT USED FOR UNKNOWN INDICATION
     Dosage: DOSE: 2 DOSAGE FORMS; THERAPY DURATION: 160 DAYS
     Route: 065
  4. CELLCEPT [Suspect]
     Active Substance: MYCOPHENOLATE MOFETIL\MYCOPHENOLATE MOFETIL HYDROCHLORIDE
     Dosage: DOSE: 2 DOSAGE FORMS
     Route: 048
  5. TYLENOL [Concomitant]
     Active Substance: ACETAMINOPHEN
  6. PHOTOTHERAPY [Concomitant]
  7. CETIRIZINE [Concomitant]
     Active Substance: CETIRIZINE HYDROCHLORIDE
  8. VIAGRA [Concomitant]
     Active Substance: SILDENAFIL CITRATE
     Route: 065
  9. CELLCEPT [Suspect]
     Active Substance: MYCOPHENOLATE MOFETIL\MYCOPHENOLATE MOFETIL HYDROCHLORIDE
     Dosage: DOSE: 1 DOSAGE FORMS
     Route: 048
  10. DERMOVATE [Concomitant]
     Active Substance: CLOBETASOL
  11. CIALIS [Concomitant]
     Active Substance: TADALAFIL
     Route: 065
  12. PANTOPRAZOLE [Concomitant]
     Active Substance: PANTOPRAZOLE SODIUM

REACTIONS (10)
  - Dyspepsia [Unknown]
  - Muscle spasms [Unknown]
  - Erectile dysfunction [Unknown]
  - Back pain [Unknown]
  - Chest pain [Unknown]
  - Diarrhoea [Unknown]
  - Fatigue [Unknown]
  - Gastrooesophageal reflux disease [Unknown]
  - Insomnia [Unknown]
  - Vomiting [Unknown]
